FAERS Safety Report 13744837 (Version 10)
Quarter: 2020Q1

REPORT INFORMATION
  Report Type: Spontaneous
  Country: US (occurrence: US)
  Receive Date: 20170712
  Receipt Date: 20200306
  Transmission Date: 20200409
  Serious: No
  Sender: FDA-Public Use
  Company Number: US-PFIZER INC-2017299147

PATIENT
  Age: 72 Year
  Sex: Female
  Weight: 69 kg

DRUGS (5)
  1. LYRICA [Suspect]
     Active Substance: PREGABALIN
     Indication: POST HERPETIC NEURALGIA
  2. LYRICA [Suspect]
     Active Substance: PREGABALIN
     Indication: EXTRAOCULAR MUSCLE DISORDER
     Dosage: UNK (DECREASED DOSE)
     Route: 048
  3. LYRICA [Suspect]
     Active Substance: PREGABALIN
     Indication: HERPES ZOSTER
     Dosage: 150 MG, 2X/DAY
     Route: 048
     Dates: start: 2008
  4. BACLOFEN. [Concomitant]
     Active Substance: BACLOFEN
     Indication: HERPES ZOSTER
  5. BACLOFEN. [Concomitant]
     Active Substance: BACLOFEN
     Indication: MUSCLE SPASMS
     Dosage: 50 MG, 1X/DAY
     Dates: start: 2008

REACTIONS (7)
  - Drug effective for unapproved indication [Unknown]
  - Dizziness [Unknown]
  - Head injury [Unknown]
  - Product use in unapproved indication [Unknown]
  - Fall [Unknown]
  - Off label use [Unknown]
  - Hypersomnia [Unknown]

NARRATIVE: CASE EVENT DATE: 2008
